FAERS Safety Report 5286521-0 (Version None)
Quarter: 2007Q1

REPORT INFORMATION
  Report Type: 
  Country: None (occurrence: None)
  Receive Date: 20070104
  Receipt Date: 20060908
  Transmission Date: 20070707
  Serious: No
  Sender: FDA-Public Use
  Company Number: BDI-008623

PATIENT
  Age: 27 Year
  Sex: Male

DRUGS (3)
  1. MULTIHANCE [Suspect]
     Indication: ANGIOGRAM
     Dosage: 20 ML ONCE IV
     Route: 042
     Dates: start: 20060908, end: 20060908
  2. ANTIHYPERTENSIVES [Concomitant]
  3. CLONIDINE [Concomitant]

REACTIONS (2)
  - BURNING SENSATION [None]
  - OEDEMA PERIPHERAL [None]
